FAERS Safety Report 24840258 (Version 1)
Quarter: 2025Q1

REPORT INFORMATION
  Report Type: Spontaneous
  Country: US (occurrence: US)
  Receive Date: 20250114
  Receipt Date: 20250114
  Transmission Date: 20250408
  Serious: Yes (Other)
  Sender: CHEPLAPHARM
  Company Number: US-CHEPLA-2025000490

PATIENT
  Age: 63 Year
  Sex: Female

DRUGS (4)
  1. HYDROXYUREA [Suspect]
     Active Substance: HYDROXYUREA
     Indication: Polycythaemia vera
  2. HYDROXYUREA [Suspect]
     Active Substance: HYDROXYUREA
     Indication: Polycythaemia vera
  3. MYCOPHENOLATE MOFETIL [Suspect]
     Active Substance: MYCOPHENOLATE MOFETIL
     Indication: Immunosuppression
  4. TACROLIMUS [Suspect]
     Active Substance: TACROLIMUS
     Indication: Immunosuppression

REACTIONS (8)
  - Thrombocytopenia [Recovering/Resolving]
  - Myelofibrosis [Unknown]
  - Ascites [Unknown]
  - Splenomegaly [Unknown]
  - Splenic varices [Unknown]
  - Transaminases increased [Unknown]
  - Abdominal pain [Unknown]
  - Extramedullary haemopoiesis [Unknown]

NARRATIVE: CASE EVENT DATE: 20230101
